FAERS Safety Report 23660422 (Version 1)
Quarter: 2024Q1

REPORT INFORMATION
  Report Type: Report from Study
  Country: CA (occurrence: CA)
  Receive Date: 20240321
  Receipt Date: 20240321
  Transmission Date: 20240410
  Serious: Yes (Hospitalization, Other)
  Sender: FDA-Public Use
  Company Number: CA-ABBVIE-5687998

PATIENT
  Sex: Female

DRUGS (2)
  1. RINVOQ [Suspect]
     Active Substance: UPADACITINIB
     Indication: Rheumatoid arthritis
     Dosage: FORM STRENGTH: 15 MILLIGRAMS
     Route: 048
     Dates: start: 20230617, end: 202312
  2. RINVOQ [Suspect]
     Active Substance: UPADACITINIB
     Indication: Rheumatoid arthritis
     Dosage: FORM STRENGTH WAS 15 MILLIGRAMS
     Route: 048
     Dates: start: 20240301

REACTIONS (7)
  - Sepsis [Unknown]
  - Hip arthroplasty [Unknown]
  - Joint arthroplasty [Unknown]
  - Arthralgia [Unknown]
  - Cough [Recovering/Resolving]
  - Sinus disorder [Recovered/Resolved]
  - Pneumonia viral [Unknown]

NARRATIVE: CASE EVENT DATE: 20230101
